FAERS Safety Report 21371693 (Version 1)
Quarter: 2022Q3

REPORT INFORMATION
  Report Type: Spontaneous
  Country: FR (occurrence: FR)
  Receive Date: 20220923
  Receipt Date: 20220923
  Transmission Date: 20221026
  Serious: Yes (Hospitalization, Other)
  Sender: FDA-Public Use
  Company Number: None

PATIENT
  Age: 49 Year
  Sex: Male

DRUGS (15)
  1. VALPROATE SODIUM [Suspect]
     Active Substance: VALPROATE SODIUM
     Indication: Product used for unknown indication
     Dosage: UNIT DOSE : 500 MG , THERAPY END DATE : NASK
     Dates: start: 20210619
  2. ZOLOFT [Suspect]
     Active Substance: SERTRALINE HYDROCHLORIDE
     Indication: Product used for unknown indication
     Dosage: UNIT DOSE : 25 MG
  3. ESCITALOPRAM OXALATE [Suspect]
     Active Substance: ESCITALOPRAM OXALATE
     Indication: Product used for unknown indication
     Dosage: UNIT DOSE : 15 MG , THERAPY END DATE : NASK
     Dates: start: 20210619
  4. RIVOTRIL [Suspect]
     Active Substance: CLONAZEPAM
     Indication: Epilepsy
     Dosage: LONG COURSE , FORM STRENGTH :  2 MG, FOUR-SCORED TABLET , UNIT DOSE : 6 MG , FREQUENCY TIME : 1 DAY
  5. PHENOBARBITAL [Suspect]
     Active Substance: PHENOBARBITAL
     Indication: Epilepsy
     Dosage: LONG COURSE ,FORM STRENGTH : 50MG ,UNIT DOSE : 150 MG ,  FREQUENCY TIME : 1 DAY
  6. KEPPRA [Suspect]
     Active Substance: LEVETIRACETAM
     Indication: Product used for unknown indication
     Dosage: UNIT DOSE :500 MG (1.5 TABLETS AT 8AM AND 1.5 TABLETS AT 8PM)
  7. LOXAPINE [Suspect]
     Active Substance: LOXAPINE
     Indication: Product administration error
     Dosage: 1 SINGLE SOCKET , FORM STRENGTH :  25 MG  , UNIT DOSE : 25 MG , FREQUENCY TIME : 1 TOTAL , DURATION
     Dates: start: 20210619, end: 20210619
  8. CLOZAPINE [Suspect]
     Active Substance: CLOZAPINE
     Indication: Product administration error
     Dosage: 1 SINGLE SOCKET , UNIT DOSE : 200 MG   , FREQUENCY TIME :1 TOTAL   , DURATION : 1 DAY
     Dates: start: 20210619, end: 20210619
  9. PRAZEPAM [Suspect]
     Active Substance: PRAZEPAM
     Indication: Anxiety
     Dosage: LONG COURSE , FORM STRENGTH : 10 MG , UNIT DOSE : 40 MG  , FREQUENCY TIME : 1 DAY
  10. MESTINON [Concomitant]
     Active Substance: PYRIDOSTIGMINE BROMIDE
     Indication: Product used for unknown indication
  11. POLYETHYLENE GLYCOL 4000 [Concomitant]
     Active Substance: POLYETHYLENE GLYCOL 4000
     Indication: Product used for unknown indication
     Dosage: 1 SACHET AT 8 AM AND 1 SACHET AT 8 AM
  12. FINASTERIDE [Concomitant]
     Active Substance: FINASTERIDE
     Indication: Product used for unknown indication
     Dates: start: 20210705
  13. KARDEGIC [Concomitant]
     Active Substance: ASPIRIN DL-LYSINE
     Indication: Product used for unknown indication
     Dosage: 1 SACHET AT NOON
  14. ESCITALOPRAM [Concomitant]
     Active Substance: ESCITALOPRAM OXALATE
     Indication: Product used for unknown indication
     Dosage: 1 DOSAGE FORMS DAILY; 1 DF DAILY, (1 TABLET IN THE MORNING)
  15. ALFUZOSIN [Concomitant]
     Active Substance: ALFUZOSIN
     Indication: Product used for unknown indication
     Dates: start: 20210705

REACTIONS (5)
  - Hypotension [Unknown]
  - Product administration error [Recovered/Resolved]
  - Pneumonia aspiration [Recovered/Resolved]
  - Respiratory acidosis [Unknown]
  - Respiratory failure [Recovered/Resolved]

NARRATIVE: CASE EVENT DATE: 20210619
